FAERS Safety Report 19814812 (Version 1)
Quarter: 2021Q3

REPORT INFORMATION
  Report Type: Spontaneous
  Country: US (occurrence: US)
  Receive Date: 20210909
  Receipt Date: 20210909
  Transmission Date: 20211014
  Serious: Yes (Other)
  Sender: FDA-Public Use
  Company Number: US-JNJFOC-20210765705

PATIENT
  Age: 8 Decade
  Sex: Male

DRUGS (1)
  1. TYLENOL [Suspect]
     Active Substance: ACETAMINOPHEN
     Indication: PAIN
     Dosage: 1 TABLET ONCE
     Route: 048
     Dates: start: 20210308, end: 20210308

REACTIONS (5)
  - Oesophageal spasm [Recovered/Resolved]
  - Foreign body in throat [Recovered/Resolved]
  - Pain [Recovered/Resolved]
  - Skin discolouration [Recovered/Resolved]
  - Dyspnoea [Recovered/Resolved]

NARRATIVE: CASE EVENT DATE: 20210308
